FAERS Safety Report 5482013-4 (Version None)
Quarter: 2007Q4

REPORT INFORMATION
  Report Type: 
  Country: None (occurrence: None)
  Receive Date: 20071005
  Receipt Date: 20070924
  Transmission Date: 20080405
  Serious: Yes (Other)
  Sender: FDA-Public Use
  Company Number: 41112

PATIENT
  Age: 66 Year
  Sex: Male
  Weight: 77 kg

DRUGS (1)
  1. DACARBAZINE [Suspect]
     Indication: METASTATIC MALIGNANT MELANOMA
     Dosage: 1940 MG
     Dates: start: 20060906, end: 20061004

REACTIONS (5)
  - DISEASE PROGRESSION [None]
  - DRUG TOXICITY [None]
  - MEDICATION ERROR [None]
  - NEUTROPENIA [None]
  - OVERDOSE [None]
